FAERS Safety Report 14018555 (Version 1)
Quarter: 2017Q3

REPORT INFORMATION
  Report Type: Spontaneous
  Country: US (occurrence: US)
  Receive Date: 20170928
  Receipt Date: 20170928
  Transmission Date: 20171128
  Serious: Yes (Other)
  Sender: FDA-Public Use
  Company Number: None

PATIENT
  Sex: Female
  Weight: 85.5 kg

DRUGS (4)
  1. VICTOZA [Suspect]
     Active Substance: LIRAGLUTIDE
     Indication: DIABETES MELLITUS
     Dosage: ?          OTHER ROUTE:INJECTION?
     Dates: start: 20151001, end: 20170928
  2. CINNAMON HARMONY [Concomitant]
  3. METFORMIN [Suspect]
     Active Substance: METFORMIN HYDROCHLORIDE
     Indication: DIABETES MELLITUS
     Route: 048
     Dates: start: 20151001, end: 20170928
  4. TRAJENTA [Concomitant]
     Active Substance: LINAGLIPTIN

REACTIONS (4)
  - Alopecia [None]
  - Vomiting [None]
  - Gastrooesophageal reflux disease [None]
  - Toxicity to various agents [None]

NARRATIVE: CASE EVENT DATE: 20170928
